FAERS Safety Report 7060700-4 (Version None)
Quarter: 2010Q4

REPORT INFORMATION
  Report Type: 
  Country: None (occurrence: None)
  Receive Date: 20101025
  Receipt Date: 20101019
  Transmission Date: 20110411
  Serious: Yes (Death)
  Sender: FDA-Public Use
  Company Number: CA-ROCHE-735356

PATIENT
  Sex: Male
  Weight: 70.8 kg

DRUGS (5)
  1. BEVACIZUMAB [Suspect]
     Route: 042
     Dates: start: 20091101, end: 20100801
  2. INSULIN [Concomitant]
  3. METHADONE [Concomitant]
  4. NEXIUM [Concomitant]
  5. GABAPENTIN [Concomitant]
     Dosage: DRUG: NOVO-GABAPENTIN

REACTIONS (1)
  - DEATH [None]
